FAERS Safety Report 7482232-1 (Version None)
Quarter: 2011Q2

REPORT INFORMATION
  Report Type: 
  Country: None (occurrence: None)
  Receive Date: 20110516
  Receipt Date: 20110513
  Transmission Date: 20111010
  Serious: No
  Sender: FDA-Public Use
  Company Number: US-PFIZER INC-2011103584

PATIENT
  Sex: Female
  Weight: 52 kg

DRUGS (4)
  1. LYRICA [Suspect]
     Indication: FIBROMYALGIA
     Dosage: 75 MG, 1X/DAY
     Route: 048
     Dates: start: 20110512
  2. MORPHINE [Concomitant]
     Indication: PAIN
     Dosage: UNK
  3. TRAMADOL [Concomitant]
     Indication: PAIN
     Dosage: UNK
  4. PREDNISONE [Concomitant]
     Indication: ARTHRITIS
     Dosage: UNK

REACTIONS (3)
  - DIZZINESS [None]
  - SOMNOLENCE [None]
  - MUSCLE SPASMS [None]
